FAERS Safety Report 19751183 (Version 3)
Quarter: 2021Q3

REPORT INFORMATION
  Report Type: Other
  Country: BE (occurrence: BE)
  Receive Date: 20210826
  Receipt Date: 20210930
  Transmission Date: 20211014
  Serious: Yes (Hospitalization)
  Sender: FDA-Public Use
  Company Number: BE-ROCHE-2888118

PATIENT
  Age: 40 Year
  Sex: Female
  Weight: 79.6 kg

DRUGS (11)
  1. PARACETAMOL [Concomitant]
     Active Substance: ACETAMINOPHEN
     Indication: MULTIPLE SCLEROSIS
     Route: 048
     Dates: start: 20191117
  2. ELIQUIS [Concomitant]
     Active Substance: APIXABAN
     Dosage: YES
     Dates: start: 20201001
  3. OCRELIZUMAB. [Suspect]
     Active Substance: OCRELIZUMAB
     Indication: RELAPSING-REMITTING MULTIPLE SCLEROSIS
     Dosage: ON 12/NOV/2020, SHE RECEIVED THE MOST RECENT DOSE OF OCRELIZUMAB (600 MG AND TOTAL VOLUME: 500 ML) D
     Route: 042
     Dates: start: 20200518
  4. TRADONAL RETARD [Concomitant]
     Active Substance: TRAMADOL HYDROCHLORIDE
     Indication: MULTIPLE SCLEROSIS
     Route: 048
     Dates: start: 20191117
  5. RIVOTRIL [Concomitant]
     Active Substance: CLONAZEPAM
     Indication: PROPHYLAXIS
     Route: 048
     Dates: start: 20190329
  6. FAMPYRA [Concomitant]
     Active Substance: DALFAMPRIDINE
     Route: 048
     Dates: start: 20200127
  7. IBUPROFEN. [Concomitant]
     Active Substance: IBUPROFEN
     Route: 048
     Dates: start: 20200827
  8. AUGMENTIN [Concomitant]
     Active Substance: AMOXICILLIN\CLAVULANATE POTASSIUM
     Dosage: NO
     Dates: start: 20210319, end: 20210319
  9. LYRICA [Concomitant]
     Active Substance: PREGABALIN
     Indication: PROPHYLAXIS
     Route: 048
     Dates: start: 20191127
  10. SIRDALUD [Concomitant]
     Active Substance: TIZANIDINE
     Route: 048
     Dates: start: 20210119
  11. COENZYME Q10 [Concomitant]
     Active Substance: DIETARY SUPPLEMENT\UBIDECARENONE
     Route: 048
     Dates: start: 20191205

REACTIONS (3)
  - Pneumonia [Recovered/Resolved]
  - Chest pain [Recovered/Resolved]
  - Dyspnoea exertional [Recovered/Resolved]

NARRATIVE: CASE EVENT DATE: 20210318
